FAERS Safety Report 13171272 (Version 1)
Quarter: 2017Q1

REPORT INFORMATION
  Report Type: Spontaneous
  Country: US (occurrence: US)
  Receive Date: 20170131
  Receipt Date: 20170131
  Transmission Date: 20170428
  Serious: No
  Sender: FDA-Public Use
  Company Number: US-ABBVIE-16K-163-1673610-00

PATIENT
  Sex: Female

DRUGS (1)
  1. HUMIRA [Suspect]
     Active Substance: ADALIMUMAB
     Indication: PRODUCT USED FOR UNKNOWN INDICATION
     Route: 058

REACTIONS (7)
  - Pruritus [Unknown]
  - Psoriasis [Unknown]
  - Feeling hot [Unknown]
  - Psychiatric symptom [Unknown]
  - Affective disorder [Unknown]
  - Sticky skin [Unknown]
  - Discomfort [Unknown]
